FAERS Safety Report 8546707-6 (Version None)
Quarter: 2012Q3

REPORT INFORMATION
  Report Type: 
  Country: None (occurrence: None)
  Receive Date: 20120727
  Receipt Date: 20120130
  Transmission Date: 20120928
  Serious: No
  Sender: FDA-Public Use
  Company Number: US-ASTRAZENECA-2012SE06178

PATIENT
  Age: 53 Year
  Sex: Female
  Weight: 90.7 kg

DRUGS (2)
  1. SEROQUEL XR [Suspect]
     Indication: MAJOR DEPRESSION
     Route: 048
  2. TRAZODONE HCL [Concomitant]
     Indication: DEPRESSION

REACTIONS (4)
  - INSOMNIA [None]
  - DRUG DOSE OMISSION [None]
  - DIZZINESS [None]
  - NAUSEA [None]
